FAERS Safety Report 19063639 (Version 3)
Quarter: 2021Q2

REPORT INFORMATION
  Report Type: Spontaneous
  Country: US (occurrence: US)
  Receive Date: 20210326
  Receipt Date: 20210428
  Transmission Date: 20210717
  Serious: Yes (Death, Hospitalization)
  Sender: FDA-Public Use
  Company Number: NVSC2021US065467

PATIENT
  Age: 57 Year
  Sex: Male
  Weight: 81 kg

DRUGS (4)
  1. CYCLOPHOSPHAMIDE. [Concomitant]
     Active Substance: CYCLOPHOSPHAMIDE
     Indication: WHITE BLOOD CELL COUNT
     Dosage: UNK, QD
     Route: 042
     Dates: start: 20210310, end: 20210312
  2. KYMRIAH [Suspect]
     Active Substance: TISAGENLECLEUCEL
     Indication: DIFFUSE LARGE B-CELL LYMPHOMA
     Dosage: 4.6 DF (ONE SINGLE DOSE) (3.3E8 CAR T CELLS)
     Route: 042
     Dates: start: 20210315, end: 20210315
  3. FLUDARABINE [Concomitant]
     Active Substance: FLUDARABINE PHOSPHATE
     Indication: WHITE BLOOD CELL COUNT
     Dosage: UNK, QD
     Route: 042
     Dates: start: 20210310, end: 20210312
  4. HALOPERIDOL. [Concomitant]
     Active Substance: HALOPERIDOL
     Indication: NAUSEA
     Dosage: UNK, PRN
     Route: 048
     Dates: start: 20210329

REACTIONS (5)
  - Diffuse large B-cell lymphoma [Fatal]
  - Lactic acidosis [Unknown]
  - Pyrexia [Unknown]
  - Malignant neoplasm progression [Fatal]
  - Dyspnoea [Unknown]

NARRATIVE: CASE EVENT DATE: 20210318
